FAERS Safety Report 8349522-1 (Version None)
Quarter: 2012Q2

REPORT INFORMATION
  Report Type: 
  Country: None (occurrence: None)
  Receive Date: 20120510
  Receipt Date: 20101021
  Transmission Date: 20120825
  Serious: No
  Sender: FDA-Public Use
  Company Number: US-TEVA-2010005563

PATIENT
  Sex: Female
  Weight: 58.112 kg

DRUGS (2)
  1. RESTASIS [Concomitant]
     Indication: DRY EYE
     Route: 047
     Dates: start: 20060101
  2. NUVIGIL [Suspect]
     Indication: FATIGUE
     Dosage: 250 MILLIGRAM;
     Route: 048
     Dates: start: 20100901

REACTIONS (4)
  - DECREASED APPETITE [None]
  - DRY MOUTH [None]
  - DRY EYE [None]
  - ABDOMINAL DISCOMFORT [None]
